FAERS Safety Report 14547701 (Version 1)
Quarter: 2018Q1

REPORT INFORMATION
  Report Type: Spontaneous
  Country: NL (occurrence: NL)
  Receive Date: 20180219
  Receipt Date: 20180219
  Transmission Date: 20180509
  Serious: Yes (Other)
  Sender: FDA-Public Use
  Company Number: NL-BRISTOL-MYERS SQUIBB COMPANY-BMS-2018-012667

PATIENT
  Age: 4 Decade
  Sex: Female

DRUGS (3)
  1. KENACORT-A [Suspect]
     Active Substance: TRIAMCINOLONE
     Indication: BURSITIS
     Dosage: 40 MG/ML, UNK
     Route: 065
  2. LIDOCAINE HYDROCHLORIDE. [Suspect]
     Active Substance: LIDOCAINE HYDROCHLORIDE
     Indication: BURSITIS
     Dosage: 1 ML, UNK
     Route: 065
  3. DOXYCYCLINE. [Concomitant]
     Active Substance: DOXYCYCLINE
     Indication: PRODUCT USED FOR UNKNOWN INDICATION
     Route: 065

REACTIONS (4)
  - Injection site atrophy [Unknown]
  - Lipodystrophy acquired [Unknown]
  - Skin induration [Unknown]
  - Swelling [Unknown]
